FAERS Safety Report 17408392 (Version 1)
Quarter: 2020Q1

REPORT INFORMATION
  Report Type: Spontaneous
  Country: IT (occurrence: IT)
  Receive Date: 20200212
  Receipt Date: 20200212
  Transmission Date: 20200409
  Serious: Yes (Hospitalization)
  Sender: FDA-Public Use
  Company Number: IT-MYLANLABS-2020M1015184

PATIENT
  Age: 87 Year
  Sex: Female

DRUGS (6)
  1. ELIQUIS [Concomitant]
     Active Substance: APIXABAN
     Dosage: UNK
  2. LEXOTAN [Concomitant]
     Active Substance: BROMAZEPAM
     Dosage: UNK
  3. CORDARONE [Suspect]
     Active Substance: AMIODARONE HYDROCHLORIDE
     Indication: ARRHYTHMIA
     Dosage: 1 DOSAGE FORM, QD
     Route: 048
  4. ESIDREX [Concomitant]
     Active Substance: HYDROCHLOROTHIAZIDE
     Dosage: UNK
  5. ISOPTIN [Suspect]
     Active Substance: VERAPAMIL HYDROCHLORIDE
     Indication: ARRHYTHMIA
     Dosage: 1 DOSAGE FORM, QD
     Route: 048
  6. DEURSIL [Concomitant]
     Active Substance: URSODIOL
     Dosage: UNK

REACTIONS (2)
  - Therapy non-responder [Unknown]
  - Arrhythmia [Unknown]

NARRATIVE: CASE EVENT DATE: 20191025
